FAERS Safety Report 8357192-1 (Version None)
Quarter: 2012Q2

REPORT INFORMATION
  Report Type: 
  Country: None (occurrence: None)
  Receive Date: 20120510
  Receipt Date: 20120425
  Transmission Date: 20120825
  Serious: Yes (Hospitalization)
  Sender: FDA-Public Use
  Company Number: 2012S1000021

PATIENT
  Age: 51 Year
  Sex: Male

DRUGS (24)
  1. LISINOPRIL [Concomitant]
  2. MORPHINE [Concomitant]
  3. HYDROCORTISONE [Concomitant]
  4. POTASSIUM CHLORIDE [Concomitant]
  5. RANITIDINE [Concomitant]
  6. VITAMIN D /00318501/ [Concomitant]
  7. ASPIRIN [Concomitant]
  8. BENADRYL /00945501/ [Concomitant]
  9. LORATADINE [Concomitant]
  10. SODIUM CHLORIDE [Concomitant]
  11. XANAX [Concomitant]
  12. SENNA /00142201/ [Concomitant]
  13. TYLENOL (CAPLET) [Concomitant]
  14. PREDNISONE [Concomitant]
  15. ANTIHISTAMINES [Concomitant]
  16. TIZANIDINE [Concomitant]
  17. SLEEP AID /01041702 [Concomitant]
  18. LASIX [Concomitant]
  19. LORTAB [Concomitant]
  20. DEXILANT [Concomitant]
  21. KRYSTEXXA [Suspect]
     Indication: GOUT
     Dosage: 8 MG; QOW; IV, 8 MG;QOW;IV
     Route: 042
     Dates: start: 20111212, end: 20120319
  22. KRYSTEXXA [Suspect]
     Indication: GOUT
     Dosage: 8 MG; QOW; IV, 8 MG;QOW;IV
     Route: 042
     Dates: start: 20120402, end: 20120402
  23. METOPROLOL TARTRATE [Concomitant]
  24. FLONASE [Concomitant]

REACTIONS (22)
  - SKIN DISCOLOURATION [None]
  - DYSPHONIA [None]
  - CHEST PAIN [None]
  - CONTUSION [None]
  - BLOOD BLISTER [None]
  - CONDITION AGGRAVATED [None]
  - ARTHRALGIA [None]
  - GOUT [None]
  - ABDOMINAL DISTENSION [None]
  - CHEST DISCOMFORT [None]
  - COLD SWEAT [None]
  - DIVERTICULUM [None]
  - PHARYNGITIS [None]
  - OEDEMA PERIPHERAL [None]
  - NAUSEA [None]
  - THROMBOSIS [None]
  - DYSPNOEA [None]
  - DRUG INTOLERANCE [None]
  - ANGIOEDEMA [None]
  - VOMITING [None]
  - CONSTIPATION [None]
  - EJECTION FRACTION DECREASED [None]
